FAERS Safety Report 8583534-8 (Version None)
Quarter: 2012Q3

REPORT INFORMATION
  Report Type: 
  Country: None (occurrence: None)
  Receive Date: 20120809
  Receipt Date: 20120808
  Transmission Date: 20120928
  Serious: Yes (Death, Hospitalization, Other)
  Sender: FDA-Public Use
  Company Number: PHHO2011TW04462

PATIENT
  Sex: Male
  Weight: 72.109 kg

DRUGS (25)
  1. VALSARTAN [Suspect]
     Dosage: 100 MG, BID
     Route: 048
     Dates: start: 20110104, end: 20110116
  2. CARVEDILOL [Suspect]
     Dosage: UNK
  3. FUROSEMIDE [Suspect]
     Indication: CARDIAC FAILURE CONGESTIVE
     Dosage: 40 MG, QD
     Route: 048
     Dates: start: 20110629
  4. BROWN MIXTURE [Concomitant]
     Indication: COUGH
     Dosage: UNK
     Route: 048
     Dates: start: 20110905
  5. GLUCOPHAGE [Concomitant]
     Indication: TYPE 2 DIABETES MELLITUS
     Dosage: 500 MG, TID
     Route: 048
     Dates: start: 20110902
  6. VALSARTAN [Suspect]
     Dosage: UNK
     Route: 048
     Dates: start: 20111014, end: 20120620
  7. FUROSEMIDE [Suspect]
     Dosage: 20 MG, PRN
     Route: 048
     Dates: start: 20120621, end: 20120707
  8. TAMSULOSIN HCL [Concomitant]
     Indication: BENIGN PROSTATIC HYPERPLASIA
     Dosage: 0.2 MG, QD
     Route: 048
     Dates: start: 20100318
  9. CRESTOR [Concomitant]
     Indication: HYPERLIPIDAEMIA
     Dosage: 10 MG, QD
     Route: 048
     Dates: start: 20110907
  10. VALSARTAN [Suspect]
     Dosage: UNK
     Route: 048
     Dates: start: 20120621, end: 20120720
  11. CARVEDILOL [Suspect]
     Indication: CARDIAC FAILURE CONGESTIVE
     Dosage: 6.25 MG, BID
     Route: 048
     Dates: start: 20110308
  12. LEVEMIR [Concomitant]
     Indication: TYPE 2 DIABETES MELLITUS
     Dosage: UNK
     Route: 058
     Dates: start: 20110629, end: 20110629
  13. ATENOLOL [Concomitant]
     Indication: HYPERTENSION
     Dosage: 5 MG, UNK
     Route: 048
     Dates: start: 20110905
  14. VALSARTAN [Suspect]
     Dosage: 200 MG, BID
     Dates: start: 20110117, end: 20110130
  15. ENALAPRIL MALEATE [Suspect]
     Indication: CARDIAC FAILURE CHRONIC
     Dosage: 10 MG, BID
     Route: 048
     Dates: start: 20101220, end: 20110102
  16. ZOLPIDEM TARTRATE [Concomitant]
     Indication: INSOMNIA
     Dosage: 100 MG, UNK
     Route: 048
     Dates: start: 20110122
  17. VALSARTAN [Suspect]
     Dosage: UNK
     Route: 048
     Dates: start: 20110906, end: 20111013
  18. AMARYL [Concomitant]
     Indication: TYPE 2 DIABETES MELLITUS
     Dosage: 2 MG, TID
     Route: 048
     Dates: start: 20110308
  19. VALSARTAN [Suspect]
     Dosage: UNK
     Route: 048
     Dates: start: 20110311, end: 20110324
  20. VALSARTAN [Suspect]
     Dosage: UNK (REDUCED DOSAGE)
     Route: 048
     Dates: start: 20110325, end: 20110903
  21. GLUCOBAY [Concomitant]
     Dosage: 5 MG, TID
     Route: 048
     Dates: start: 20090827
  22. VALSARTAN [Suspect]
     Indication: CARDIAC FAILURE CHRONIC
     Dosage: UNK
     Route: 048
     Dates: start: 20110201, end: 20110306
  23. CARVEDILOL [Suspect]
     Dosage: 12.5 MG, QD
     Route: 048
     Dates: start: 20110915
  24. BOKEY EMC [Concomitant]
     Indication: CARDIAC FAILURE CONGESTIVE
     Dosage: 100 MG, BID
     Route: 048
     Dates: start: 20060301
  25. SPIRONOLACTONE [Concomitant]
     Indication: CARDIAC FAILURE CONGESTIVE
     Dosage: 25 MG, BID
     Route: 048
     Dates: start: 20110529

REACTIONS (9)
  - CONCOMITANT DISEASE PROGRESSION [None]
  - ORTHOSTATIC HYPOTENSION [None]
  - HYPOVOLAEMIA [None]
  - DIZZINESS [None]
  - ATRIAL FIBRILLATION [None]
  - VENTRICULAR FIBRILLATION [None]
  - CARDIOGENIC SHOCK [None]
  - HAEMOTHORAX [None]
  - PNEUMONIA [None]
